FAERS Safety Report 17982979 (Version 1)
Quarter: 2020Q3

REPORT INFORMATION
  Report Type: Spontaneous
  Country: US (occurrence: US)
  Receive Date: 20200703
  Receipt Date: 20200703
  Transmission Date: 20201103
  Serious: Yes (Other)
  Sender: FDA-Public Use
  Company Number: None

PATIENT
  Age: 3 Year
  Sex: Female
  Weight: 12 kg

DRUGS (5)
  1. CYTARABINE. [Concomitant]
     Active Substance: CYTARABINE
  2. DIPRIVAN [Suspect]
     Active Substance: PROPOFOL
     Indication: SEDATION
     Dosage: ?          OTHER FREQUENCY:PRECEDURAL SEDATIO;?
     Route: 042
     Dates: start: 20200702, end: 20200702
  3. METHOTREXATE. [Concomitant]
     Active Substance: METHOTREXATE
  4. FENTANYL. [Concomitant]
     Active Substance: FENTANYL
  5. HYDROCORTISONE. [Concomitant]
     Active Substance: HYDROCORTISONE

REACTIONS (1)
  - Therapeutic product effect incomplete [None]

NARRATIVE: CASE EVENT DATE: 20200702
